FAERS Safety Report 23685409 (Version 3)
Quarter: 2024Q2

REPORT INFORMATION
  Report Type: Spontaneous
  Country: US (occurrence: US)
  Receive Date: 20240329
  Receipt Date: 20240603
  Transmission Date: 20240716
  Serious: Yes (Other)
  Sender: FDA-Public Use
  Company Number: US-SA-SAC20240327000967

PATIENT
  Age: 86 Year
  Sex: Male

DRUGS (42)
  1. DUPIXENT [Suspect]
     Active Substance: DUPILUMAB
     Indication: Asthma
     Dosage: 300 MG, QOW
     Route: 058
     Dates: start: 20240221
  2. ALBUTEROL SULFATE [Concomitant]
     Active Substance: ALBUTEROL SULFATE
     Dosage: UNK
  3. ALBUTEROL SULFATE [Concomitant]
     Active Substance: ALBUTEROL SULFATE
  4. BUDESONIDE [Concomitant]
     Active Substance: BUDESONIDE
     Dosage: UNK
  5. BUDESONIDE [Concomitant]
     Active Substance: BUDESONIDE
  6. BUDESONIDE [Concomitant]
     Active Substance: BUDESONIDE
  7. DICYCLOMINE [Concomitant]
     Active Substance: DICYCLOMINE HYDROCHLORIDE
     Dosage: UNK
  8. ESOMEPRAZOLE [Concomitant]
     Active Substance: ESOMEPRAZOLE
     Dosage: UNK
  9. ESOMEPRAZOLE [Concomitant]
     Active Substance: ESOMEPRAZOLE
  10. LIVALO [Concomitant]
     Active Substance: PITAVASTATIN CALCIUM
     Dosage: UNK
  11. LIVALO [Concomitant]
     Active Substance: PITAVASTATIN CALCIUM
  12. LIVALO [Concomitant]
     Active Substance: PITAVASTATIN CALCIUM
  13. METOPROLOL SUCCINATE [Concomitant]
     Active Substance: METOPROLOL SUCCINATE
     Dosage: UNK
  14. MIRALAX [Concomitant]
     Active Substance: POLYETHYLENE GLYCOL 3350
     Dosage: UNK
  15. MIRALAX [Concomitant]
     Active Substance: POLYETHYLENE GLYCOL 3350
     Dosage: 17GM/SCOOP
  16. MIRALAX [Concomitant]
     Active Substance: POLYETHYLENE GLYCOL 3350
  17. MONTELUKAST [Concomitant]
     Active Substance: MONTELUKAST SODIUM
     Dosage: UNK
  18. MONTELUKAST [Concomitant]
     Active Substance: MONTELUKAST SODIUM
  19. MONTELUKAST [Concomitant]
     Active Substance: MONTELUKAST SODIUM
  20. POTASSIUM CHLORIDE [Concomitant]
     Active Substance: POTASSIUM CHLORIDE
     Dosage: UNK
  21. STIOLTO RESPIMAT [Concomitant]
     Active Substance: OLODATEROL HYDROCHLORIDE\TIOTROPIUM BROMIDE MONOHYDRATE
     Dosage: UNK
  22. STIOLTO RESPIMAT [Concomitant]
     Active Substance: OLODATEROL HYDROCHLORIDE\TIOTROPIUM BROMIDE MONOHYDRATE
     Dosage: 2.5-2.5M
  23. STIOLTO RESPIMAT [Concomitant]
     Active Substance: OLODATEROL HYDROCHLORIDE\TIOTROPIUM BROMIDE MONOHYDRATE
  24. TAMSULOSIN HYDROCHLORIDE [Concomitant]
     Active Substance: TAMSULOSIN HYDROCHLORIDE
     Dosage: UNK
  25. TAMSULOSIN HYDROCHLORIDE [Concomitant]
     Active Substance: TAMSULOSIN HYDROCHLORIDE
  26. TAMSULOSIN HYDROCHLORIDE [Concomitant]
     Active Substance: TAMSULOSIN HYDROCHLORIDE
  27. TRAMADOL HCL [Concomitant]
     Active Substance: TRAMADOL HYDROCHLORIDE
     Dosage: UNK
  28. TRAMADOL HCL [Concomitant]
     Active Substance: TRAMADOL HYDROCHLORIDE
  29. TRAMADOL HCL [Concomitant]
     Active Substance: TRAMADOL HYDROCHLORIDE
  30. PREDNISONE [Concomitant]
     Active Substance: PREDNISONE
     Dosage: UNK
  31. PREDNISONE [Concomitant]
     Active Substance: PREDNISONE
  32. PREDNISONE [Concomitant]
     Active Substance: PREDNISONE
  33. VITAMIN D NOS [Concomitant]
     Active Substance: CHOLECALCIFEROL\ERGOCALCIFEROL
     Dosage: UNK
  34. VITAMIN D NOS [Concomitant]
     Active Substance: CHOLECALCIFEROL\ERGOCALCIFEROL
  35. VITAMIN D NOS [Concomitant]
     Active Substance: CHOLECALCIFEROL\ERGOCALCIFEROL
  36. IPRATROPIUM [Concomitant]
     Active Substance: IPRATROPIUM
     Dosage: UNK
  37. IPRATROPIUM [Concomitant]
     Active Substance: IPRATROPIUM
  38. IPRATROPIUM [Concomitant]
     Active Substance: IPRATROPIUM
  39. ACETAMINOPHEN [Concomitant]
     Active Substance: ACETAMINOPHEN
     Dosage: UNK
  40. ACETAMINOPHEN [Concomitant]
     Active Substance: ACETAMINOPHEN
  41. VITAMINS NOS [Concomitant]
     Active Substance: VITAMINS
  42. ISOSORBIDE [Concomitant]
     Active Substance: ISOSORBIDE

REACTIONS (8)
  - Diverticulitis [Recovered/Resolved]
  - Skin discolouration [Not Recovered/Not Resolved]
  - Temperature intolerance [Not Recovered/Not Resolved]
  - Back pain [Not Recovered/Not Resolved]
  - Erythema [Not Recovered/Not Resolved]
  - Pruritus [Not Recovered/Not Resolved]
  - Arthralgia [Recovered/Resolved]
  - Arthralgia [Not Recovered/Not Resolved]

NARRATIVE: CASE EVENT DATE: 20240101
